FAERS Safety Report 25557193 (Version 2)
Quarter: 2025Q3

REPORT INFORMATION
  Report Type: Report from Study
  Country: BR (occurrence: BR)
  Receive Date: 20250715
  Receipt Date: 20250723
  Transmission Date: 20251020
  Serious: No
  Sender: NOVARTIS
  Company Number: BR-002147023-NVSC2023BR194727

PATIENT
  Age: 10 Year
  Sex: Female
  Weight: 29 kg

DRUGS (4)
  1. KYMRIAH [Suspect]
     Active Substance: TISAGENLECLEUCEL
     Indication: Lymphocyte adoptive therapy
     Route: 042
     Dates: start: 20230822, end: 20230822
  2. Bromoprid [Concomitant]
     Indication: Product used for unknown indication
     Route: 065
  3. DIMENHYDRINATE [Concomitant]
     Active Substance: DIMENHYDRINATE
     Indication: Product used for unknown indication
     Route: 065
  4. ONDANSETRON [Concomitant]
     Active Substance: ONDANSETRON
     Indication: Product used for unknown indication
     Route: 065

REACTIONS (1)
  - Extrasystoles [Recovered/Resolved]

NARRATIVE: CASE EVENT DATE: 20230902
